FAERS Safety Report 4779393-1 (Version None)
Quarter: 2005Q3

REPORT INFORMATION
  Report Type: 
  Country: None (occurrence: None)
  Receive Date: 20050927
  Receipt Date: 20050912
  Transmission Date: 20060218
  Serious: Yes (Hospitalization)
  Sender: FDA-Public Use
  Company Number: BOEHRINGER INGELHEIM PHARMACEUTICALS, INC.-2005-DE-03688DE

PATIENT
  Sex: Male
  Weight: 58 kg

DRUGS (1)
  1. TIPRANAVIR + RITONAVIR CO-ADMIN [Suspect]
     Indication: HIV INFECTION
     Dosage: TIPRANAVIR 500MG + RITONAVIR 200 MG;

REACTIONS (1)
  - ANAL ABSCESS [None]
